FAERS Safety Report 24966143 (Version 2)
Quarter: 2025Q1

REPORT INFORMATION
  Report Type: Spontaneous
  Country: US (occurrence: US)
  Receive Date: 20250213
  Receipt Date: 20250226
  Transmission Date: 20250409
  Serious: Yes (Other)
  Sender: TEVA
  Company Number: US-TEVA-VS-3295119

PATIENT
  Age: 68 Year
  Sex: Female

DRUGS (1)
  1. ERLOTINIB [Suspect]
     Active Substance: ERLOTINIB
     Indication: Lung adenocarcinoma
     Route: 048

REACTIONS (4)
  - Oral disorder [Recovering/Resolving]
  - Dermatitis acneiform [Recovering/Resolving]
  - Rash pustular [Recovering/Resolving]
  - Xerosis [Recovering/Resolving]
